FAERS Safety Report 18924971 (Version 1)
Quarter: 2021Q1

REPORT INFORMATION
  Report Type: Spontaneous
  Country: AR (occurrence: AR)
  Receive Date: 20210222
  Receipt Date: 20210222
  Transmission Date: 20210420
  Serious: Yes (Other)
  Sender: FDA-Public Use
  Company Number: AR-PFIZER INC-2021142516

PATIENT
  Age: 79 Year
  Sex: Female

DRUGS (2)
  1. IBRANCE [Suspect]
     Active Substance: PALBOCICLIB
     Indication: BREAST CANCER METASTATIC
     Dosage: 125 MG DAILY, SCHEME 3X1
     Dates: start: 20200128, end: 202007
  2. LETROZOL [Concomitant]
     Active Substance: LETROZOLE
     Dosage: UNK

REACTIONS (10)
  - Tumour haemorrhage [Unknown]
  - Feeling abnormal [Unknown]
  - Bone disorder [Unknown]
  - Mental fatigue [Unknown]
  - Wound [Unknown]
  - Pain in extremity [Unknown]
  - Mobility decreased [Unknown]
  - Limb injury [Unknown]
  - Gait disturbance [Unknown]
  - Crying [Unknown]

NARRATIVE: CASE EVENT DATE: 20210209
